FAERS Safety Report 7831488-1 (Version None)
Quarter: 2011Q4

REPORT INFORMATION
  Report Type: 
  Country: None (occurrence: None)
  Receive Date: 20111021
  Receipt Date: 20111021
  Transmission Date: 20120403
  Serious: Yes (Other)
  Sender: FDA-Public Use
  Company Number: None

PATIENT
  Sex: Female
  Weight: 63.502 kg

DRUGS (1)
  1. BOTOX [Suspect]
     Indication: OCULAR DISCOMFORT
     Dosage: 3 SHOTS

REACTIONS (3)
  - MIGRAINE [None]
  - INJECTION SITE ERYTHEMA [None]
  - SWELLING FACE [None]
